FAERS Safety Report 20140385 (Version 2)
Quarter: 2021Q4

REPORT INFORMATION
  Report Type: Report from Study
  Country: CH (occurrence: None)
  Receive Date: 20211202
  Receipt Date: 20211208
  Transmission Date: 20220303
  Serious: Yes (Death)
  Sender: FDA-Public Use
  Company Number: CH-ROCHE-2953631

PATIENT
  Age: 70 Year
  Sex: Male

DRUGS (3)
  1. ATEZOLIZUMAB [Suspect]
     Active Substance: ATEZOLIZUMAB
     Indication: Non-small cell lung cancer
     Dosage: ON 12/OCT/2021, HE RECEIVED LAST DOSE OF INTRAVENOUS ATEZOLIZUMAB PRIOR TO SAE ONSET.
     Route: 042
     Dates: start: 20210908
  2. GEMCITABINE [Suspect]
     Active Substance: GEMCITABINE
     Indication: Non-small cell lung cancer
     Dosage: ON 12/OCT/2021, HE RECEIVED LAST DOSE OF INTRAVENOUS GEMCITABINE PRIOR TO SAE ONSET.
     Route: 042
     Dates: start: 20210908
  3. PIPERACILLIN SODIUM\TAZOBACTAM SODIUM [Concomitant]
     Active Substance: PIPERACILLIN SODIUM\TAZOBACTAM SODIUM
     Route: 042
     Dates: start: 20211117, end: 20211121

REACTIONS (1)
  - Aspiration [Fatal]

NARRATIVE: CASE EVENT DATE: 20211105
